FAERS Safety Report 19632830 (Version 1)
Quarter: 2021Q3

REPORT INFORMATION
  Report Type: Spontaneous
  Country: PR (occurrence: PR)
  Receive Date: 20210730
  Receipt Date: 20210730
  Transmission Date: 20211014
  Serious: Yes (Other)
  Sender: FDA-Public Use
  Company Number: PR-ROCHE-2878019

PATIENT
  Age: 79 Year
  Sex: Male
  Weight: 51.76 kg

DRUGS (1)
  1. ZELBORAF [Suspect]
     Active Substance: VEMURAFENIB
     Indication: MALIGNANT MELANOMA
     Dosage: EVERY 12 HOURS, 2 TIMES A DAY
     Route: 048
     Dates: start: 20210604

REACTIONS (1)
  - Tracheal stenosis [Recovered/Resolved]

NARRATIVE: CASE EVENT DATE: 202107
